FAERS Safety Report 9727692 (Version 1)
Quarter: 2013Q4

REPORT INFORMATION
  Report Type: Spontaneous
  Country: US (occurrence: US)
  Receive Date: 20131203
  Receipt Date: 20131203
  Transmission Date: 20140711
  Serious: Yes (Other)
  Sender: FDA-Public Use
  Company Number: US-MYLANLABS-2013S1026612

PATIENT
  Sex: Female

DRUGS (3)
  1. TACROLIMUS [Suspect]
     Indication: IMMUNOSUPPRESSANT DRUG THERAPY
     Dosage: 0.2 MG/KG/DAY
     Route: 065
     Dates: start: 200308, end: 201009
  2. PREDNISONE [Concomitant]
     Indication: IMMUNOSUPPRESSANT DRUG THERAPY
     Route: 065
     Dates: start: 199805
  3. MYCOPHENOLATE MOFETIL [Concomitant]
     Indication: IMMUNOSUPPRESSANT DRUG THERAPY
     Dosage: 31 MG/KG/DAY
     Route: 065
     Dates: start: 200708

REACTIONS (5)
  - Food allergy [Recovering/Resolving]
  - Gastrointestinal disorder [Recovered/Resolved]
  - Dermatitis atopic [Recovering/Resolving]
  - Nephropathy toxic [Unknown]
  - Eosinophilia [Recovered/Resolved]
